FAERS Safety Report 4865641-6 (Version None)
Quarter: 2005Q4

REPORT INFORMATION
  Report Type: 
  Country: None (occurrence: None)
  Receive Date: 20051223
  Receipt Date: 20051214
  Transmission Date: 20060501
  Serious: Yes (Hospitalization)
  Sender: FDA-Public Use
  Company Number: US-ABBOTT-05P-163-0319727-00

PATIENT
  Sex: Male
  Weight: 135 kg

DRUGS (10)
  1. VICODIN [Suspect]
     Indication: ARTHRALGIA
     Route: 048
     Dates: start: 20051004, end: 20051130
  2. ATORVASTATIN [Concomitant]
     Indication: HYPERLIPIDAEMIA
     Dates: start: 19950101
  3. TRIAMTERENE [Concomitant]
     Indication: DIURETIC THERAPY
     Dates: start: 20040101
  4. ASPIRIN [Concomitant]
     Indication: CORONARY ARTERY DISEASE
     Dates: start: 19920101
  5. DIOVAN [Concomitant]
     Indication: HYPERTENSION
     Dates: end: 20051101
  6. METOPROLOL SUCCINATE [Concomitant]
     Indication: HYPERTENSION
  7. FUROSEMIDE [Concomitant]
     Indication: OEDEMA
  8. DOCUSATE SODIUM [Concomitant]
     Indication: CONSTIPATION
     Dates: start: 20051017
  9. ENALAPRIL [Concomitant]
     Indication: HYPERTENSION
     Dates: start: 20051101
  10. METHYLPREDNISOLONE ACETATE [Concomitant]
     Indication: OSTEOARTHRITIS
     Route: 030
     Dates: start: 20051129, end: 20051129

REACTIONS (1)
  - GASTRITIS [None]
